FAERS Safety Report 22541620 (Version 1)
Quarter: 2023Q2

REPORT INFORMATION
  Report Type: Spontaneous
  Country: US (occurrence: None)
  Receive Date: 20230608
  Receipt Date: 20230608
  Transmission Date: 20230722
  Serious: No
  Sender: FDA-Public Use
  Company Number: None

PATIENT
  Age: 74 Year
  Sex: Female
  Weight: 78.02 kg

DRUGS (26)
  1. JAYPIRCA [Suspect]
     Active Substance: PIRTOBRUTINIB
     Indication: Chronic leukaemia
     Dosage: FREQUENCY : DAILY;?
     Route: 048
     Dates: start: 202304
  2. JAYPIRCA [Suspect]
     Active Substance: PIRTOBRUTINIB
     Indication: Chronic lymphocytic leukaemia
  3. TYLENOL WITH CODEINE [Concomitant]
     Active Substance: ACETAMINOPHEN\CODEINE PHOSPHATE
  4. ACYCLOVIR [Concomitant]
     Active Substance: ACYCLOVIR
  5. BACTRIM [Concomitant]
     Active Substance: SULFAMETHOXAZOLE\TRIMETHOPRIM
  6. BENADRYL [Concomitant]
     Active Substance: DIPHENHYDRAMINE HYDROCHLORIDE
  7. BRUKINSA [Concomitant]
     Active Substance: ZANUBRUTINIB
  8. CLONAZEPAM [Concomitant]
     Active Substance: CLONAZEPAM
  9. CYANOCOBALAMIN [Concomitant]
     Active Substance: CYANOCOBALAMIN
  10. DIFLUCAN [Concomitant]
     Active Substance: FLUCONAZOLE
  11. ELIQUIS [Concomitant]
     Active Substance: APIXABAN
  12. FLUCONAZOLE [Concomitant]
     Active Substance: FLUCONAZOLE
  13. GLUCOSAMINE CHONDROITON [Concomitant]
  14. MAGNESIUM [Concomitant]
     Active Substance: MAGNESIUM
  15. MELOXICAM [Concomitant]
     Active Substance: MELOXICAM
  16. DIMETHYL SULFONE [Concomitant]
     Active Substance: DIMETHYL SULFONE
  17. NYSTATIN [Concomitant]
     Active Substance: NYSTATIN
  18. ONDANSETRON [Concomitant]
     Active Substance: ONDANSETRON
  19. RHODIAOLA [Concomitant]
  20. SYNTHROID [Concomitant]
     Active Substance: LEVOTHYROXINE SODIUM
  21. TRAMADOL [Concomitant]
     Active Substance: TRAMADOL
  22. TYLENOL [Concomitant]
     Active Substance: ACETAMINOPHEN
  23. VENCLEXTA [Concomitant]
     Active Substance: VENETOCLAX
  24. VITAMIN C [Concomitant]
     Active Substance: ASCORBIC ACID
  25. VITAMIN D3 [Concomitant]
     Active Substance: CHOLECALCIFEROL
  26. VITAMIN E [Concomitant]
     Active Substance: .ALPHA.-TOCOPHEROL

REACTIONS (1)
  - Weight increased [None]
